FAERS Safety Report 13366382 (Version 1)
Quarter: 2017Q1

REPORT INFORMATION
  Report Type: Spontaneous
  Country: US (occurrence: US)
  Receive Date: 20170323
  Receipt Date: 20170323
  Transmission Date: 20170429
  Serious: Yes (Hospitalization)
  Sender: FDA-Public Use
  Company Number: None

PATIENT
  Age: 68 Year
  Sex: Male
  Weight: 78.3 kg

DRUGS (3)
  1. VENETOCLAX 100 MG [Suspect]
     Active Substance: VENETOCLAX
  2. OBINUTUZUMAB 1000MG [Suspect]
     Active Substance: OBINUTUZUMAB
     Indication: CHRONIC LYMPHOCYTIC LEUKAEMIA
     Route: 042
     Dates: start: 20160607, end: 20161205
  3. IBRUTINIB [Suspect]
     Active Substance: IBRUTINIB
     Indication: CHRONIC LYMPHOCYTIC LEUKAEMIA
     Route: 048
     Dates: start: 20160711

REACTIONS (15)
  - Areflexia [None]
  - Acute kidney injury [None]
  - Cellulitis [None]
  - Malnutrition [None]
  - Pelvic abscess [None]
  - Muscular weakness [None]
  - Blood albumin decreased [None]
  - Lumbar radiculopathy [None]
  - Perforation [None]
  - Colitis ischaemic [None]
  - Abdominal abscess [None]
  - Chronic kidney disease [None]
  - Clostridium test positive [None]
  - Peritonitis [None]
  - Blood creatinine increased [None]

NARRATIVE: CASE EVENT DATE: 20170303
